FAERS Safety Report 25656972 (Version 1)
Quarter: 2025Q3

REPORT INFORMATION
  Report Type: Report from Study
  Country: CA (occurrence: CA)
  Receive Date: 20250807
  Receipt Date: 20250807
  Transmission Date: 20251021
  Serious: Yes (Other)
  Sender: ABBVIE
  Company Number: CA-ABBVIE-6405258

PATIENT
  Age: 31 Year
  Sex: Male

DRUGS (1)
  1. RINVOQ [Suspect]
     Active Substance: UPADACITINIB
     Indication: Crohn^s disease
     Route: 048
     Dates: start: 20240904, end: 20241001

REACTIONS (5)
  - Ileostomy [Unknown]
  - Rectal discharge [Unknown]
  - Crohn^s disease [Unknown]
  - Colectomy [Unknown]
  - Inflammation [Unknown]

NARRATIVE: CASE EVENT DATE: 20241001
